FAERS Safety Report 7023146-0 (Version None)
Quarter: 2010Q3

REPORT INFORMATION
  Report Type: 
  Country: None (occurrence: None)
  Receive Date: 20100930
  Receipt Date: 20100928
  Transmission Date: 20110219
  Serious: Yes (Hospitalization, Other)
  Sender: FDA-Public Use
  Company Number: GB-SHIRE-SPV1-2010-01668

PATIENT
  Age: 77 Year
  Sex: Male

DRUGS (6)
  1. ANAGRELIDE HCL [Suspect]
     Indication: THROMBOCYTOSIS
     Dosage: 1000 UG, 2X/DAY:BID
     Route: 048
  2. ASPIRIN [Suspect]
     Indication: THROMBOSIS PROPHYLAXIS
     Dosage: 75 MG, 1X/DAY:QD
     Route: 048
  3. PREDNISOLONE [Suspect]
     Indication: LOWER RESPIRATORY TRACT INFECTION
     Dosage: 30 MG, 1X/DAY:QD
     Route: 048
     Dates: start: 20100911, end: 20100915
  4. AMOXYCILLIN                        /00249601/ [Concomitant]
     Indication: PRODUCT USED FOR UNKNOWN INDICATION
  5. IRBESARTAN [Concomitant]
     Indication: PRODUCT USED FOR UNKNOWN INDICATION
  6. METFORMIN [Concomitant]
     Indication: PRODUCT USED FOR UNKNOWN INDICATION

REACTIONS (3)
  - GASTROINTESTINAL HAEMORRHAGE [None]
  - HAEMATEMESIS [None]
  - RECTAL HAEMORRHAGE [None]
